FAERS Safety Report 22039134 (Version 1)
Quarter: 2023Q1

REPORT INFORMATION
  Report Type: Spontaneous
  Country: US (occurrence: US)
  Receive Date: 20230227
  Receipt Date: 20230227
  Transmission Date: 20230417
  Serious: Yes (Death, Hospitalization, Other)
  Sender: FDA-Public Use
  Company Number: US-SANOFI-01503271

PATIENT
  Sex: Male

DRUGS (2)
  1. LOVENOX [Suspect]
     Active Substance: ENOXAPARIN SODIUM
     Dosage: 40 MG, QD
  2. LOVENOX [Suspect]
     Active Substance: ENOXAPARIN SODIUM
     Dosage: 110 MG, BID

REACTIONS (14)
  - Haematochezia [Fatal]
  - Haematemesis [Fatal]
  - Pulmonary embolism [Fatal]
  - Rash [Fatal]
  - Pruritus [Fatal]
  - Pneumonia [Fatal]
  - Chronic obstructive pulmonary disease [Fatal]
  - Sepsis [Fatal]
  - Epistaxis [Fatal]
  - Cyanosis [Fatal]
  - Erythema [Fatal]
  - Abdominal pain upper [Fatal]
  - Dysphagia [Fatal]
  - Overdose [Fatal]
